FAERS Safety Report 13263355 (Version 2)
Quarter: 2017Q1

REPORT INFORMATION
  Report Type: Spontaneous
  Country: JP (occurrence: JP)
  Receive Date: 20170223
  Receipt Date: 20170303
  Transmission Date: 20170428
  Serious: Yes (Other)
  Sender: FDA-Public Use
  Company Number: JP-ASTELLAS-2017JP003252AA

PATIENT
  Age: 65 Year
  Sex: Female

DRUGS (3)
  1. PRODIF [Suspect]
     Active Substance: FOSFLUCONAZOLE
     Route: 065
  2. PRODIF [Suspect]
     Active Substance: FOSFLUCONAZOLE
     Indication: CANDIDA INFECTION
     Route: 065
  3. FUNGUARD [Suspect]
     Active Substance: MICAFUNGIN SODIUM
     Indication: CANDIDA INFECTION
     Route: 041

REACTIONS (1)
  - Agranulocytosis [Unknown]
